FAERS Safety Report 6367648-9 (Version None)
Quarter: 2009Q3

REPORT INFORMATION
  Report Type: 
  Country: None (occurrence: None)
  Receive Date: 20090921
  Receipt Date: 20090910
  Transmission Date: 20100115
  Serious: Yes (Death, Hospitalization, Other)
  Sender: FDA-Public Use
  Company Number: DE-ROCHE-631452

PATIENT
  Sex: Male
  Weight: 115 kg

DRUGS (3)
  1. XELODA [Suspect]
     Route: 048
     Dates: start: 20090216, end: 20090220
  2. BEVACIZUMAB [Concomitant]
     Dosage: ROUTE: I.V. INFUSION/90 MIN;
     Route: 042
     Dates: start: 20090216
  3. OXALIPLATIN [Concomitant]
     Dosage: ROUTE: I.V. INFUSION/1 H;
     Route: 042
     Dates: start: 20090216

REACTIONS (7)
  - ATRIAL FIBRILLATION [None]
  - GASTROENTERITIS NOROVIRUS [None]
  - HERPES SIMPLEX [None]
  - MUCOSAL INFLAMMATION [None]
  - MULTI-ORGAN FAILURE [None]
  - PANCYTOPENIA [None]
  - SEPSIS [None]
